FAERS Safety Report 9232993 (Version 1)
Quarter: 2013Q2

REPORT INFORMATION
  Report Type: Report from Study
  Country: NO (occurrence: NO)
  Receive Date: 20130416
  Receipt Date: 20130416
  Transmission Date: 20140414
  Serious: Yes (Other)
  Sender: FDA-Public Use
  Company Number: NO-ACCORD-017162

PATIENT
  Sex: Female

DRUGS (2)
  1. LEVETIRACETAM [Suspect]
     Indication: EPILEPSY
     Dosage: DAILY DOSE 2000 (UNSPECIFIED UNITS).
  2. LAMOTRIGINE [Concomitant]
     Indication: EPILEPSY

REACTIONS (2)
  - Stillbirth [Unknown]
  - Pregnancy [Recovered/Resolved]
